FAERS Safety Report 24656576 (Version 1)
Quarter: 2024Q4

REPORT INFORMATION
  Report Type: Spontaneous
  Country: CA (occurrence: CA)
  Receive Date: 20241124
  Receipt Date: 20241124
  Transmission Date: 20250114
  Serious: Yes (Death, Other)
  Sender: BRISTOL-MYERS SQUIBB COMPANY
  Company Number: CA-BRISTOL-MYERS SQUIBB COMPANY-2024-182582

PATIENT
  Age: 43 Year
  Sex: Female
  Weight: 96 kg

DRUGS (130)
  1. ORENCIA [Suspect]
     Active Substance: ABATACEPT
     Indication: Rheumatoid arthritis
  2. VITAMIN C [Concomitant]
     Active Substance: ASCORBIC ACID
     Indication: Product used for unknown indication
  3. TRIAMCINOLONE [Concomitant]
     Active Substance: TRIAMCINOLONE
     Indication: Product used for unknown indication
  4. ACETAMINOPHEN [Concomitant]
     Active Substance: ACETAMINOPHEN
     Indication: Product used for unknown indication
  5. ACETAMINOPHEN AND CODEINE [Concomitant]
     Active Substance: ACETAMINOPHEN\CODEINE PHOSPHATE
     Indication: Rheumatoid arthritis
  6. ACTEMRA [Concomitant]
     Active Substance: TOCILIZUMAB
     Indication: Rheumatoid arthritis
     Route: 058
  7. ACTEMRA [Concomitant]
     Active Substance: TOCILIZUMAB
  8. ACTEMRA [Concomitant]
     Active Substance: TOCILIZUMAB
  9. ACTEMRA [Concomitant]
     Active Substance: TOCILIZUMAB
     Route: 040
  10. ACTEMRA [Concomitant]
     Active Substance: TOCILIZUMAB
     Route: 040
  11. ACTEMRA [Concomitant]
     Active Substance: TOCILIZUMAB
  12. ACTEMRA [Concomitant]
     Active Substance: TOCILIZUMAB
  13. ACTEMRA [Concomitant]
     Active Substance: TOCILIZUMAB
  14. ACTEMRA [Concomitant]
     Active Substance: TOCILIZUMAB
     Route: 040
  15. ADALIMUMAB [Concomitant]
     Active Substance: ADALIMUMAB
     Indication: Rheumatoid arthritis
     Route: 058
  16. ADALIMUMAB [Concomitant]
     Active Substance: ADALIMUMAB
  17. AIMOVIG [Concomitant]
     Active Substance: ERENUMAB-AOOE
     Indication: Rheumatoid arthritis
  18. AIMOVIG [Concomitant]
     Active Substance: ERENUMAB-AOOE
     Indication: Migraine
  19. ATOMOXETINE [Concomitant]
     Active Substance: ATOMOXETINE HYDROCHLORIDE
     Indication: Migraine
  20. AZATHIOPRINE [Concomitant]
     Active Substance: AZATHIOPRINE
     Indication: Product used for unknown indication
  21. BERINERT [Concomitant]
     Active Substance: HUMAN C1-ESTERASE INHIBITOR
     Indication: Product used for unknown indication
  22. BETAMETHASONE [Concomitant]
     Active Substance: BETAMETHASONE
     Indication: Product used for unknown indication
  23. BOTULINUM TOXIN TYPE A [Concomitant]
     Active Substance: BOTULINUM TOXIN TYPE A
     Indication: Product used for unknown indication
     Route: 030
  24. BOTULINUM TOXIN TYPE A [Concomitant]
     Active Substance: BOTULINUM TOXIN TYPE A
  25. BUPRENORPHINE [Concomitant]
     Active Substance: BUPRENORPHINE
     Indication: Product used for unknown indication
  26. CALCIUM ASCORBATE [Concomitant]
     Active Substance: CALCIUM ASCORBATE
     Indication: Product used for unknown indication
  27. CANDESARTAN [Concomitant]
     Active Substance: CANDESARTAN
     Indication: Rheumatoid arthritis
  28. CANDESARTAN [Concomitant]
     Active Substance: CANDESARTAN
     Indication: Migraine
     Route: 048
  29. CELECOXIB [Concomitant]
     Active Substance: CELECOXIB
     Indication: Product used for unknown indication
  30. CELECOXIB [Concomitant]
     Active Substance: CELECOXIB
  31. CETIRIZINE [Concomitant]
     Active Substance: CETIRIZINE HYDROCHLORIDE
     Indication: Rheumatoid arthritis
  32. CETIRIZINE [Concomitant]
     Active Substance: CETIRIZINE HYDROCHLORIDE
     Route: 048
  33. CETIRIZINE [Concomitant]
     Active Substance: CETIRIZINE HYDROCHLORIDE
     Route: 048
  34. CETIRIZINE [Concomitant]
     Active Substance: CETIRIZINE HYDROCHLORIDE
  35. CHOLECALCIFEROL [Concomitant]
     Active Substance: CHOLECALCIFEROL
     Indication: Product used for unknown indication
  36. CIMZIA [Concomitant]
     Active Substance: CERTOLIZUMAB PEGOL
     Indication: Rheumatoid arthritis
  37. CIMZIA [Concomitant]
     Active Substance: CERTOLIZUMAB PEGOL
     Indication: Psoriasis
  38. CORTISONE ACETATE [Concomitant]
     Active Substance: CORTISONE ACETATE
     Indication: Rheumatoid arthritis
  39. COSENTYX [Concomitant]
     Active Substance: SECUKINUMAB
     Indication: Psoriatic arthropathy
  40. CYCLOBENZAPRINE [Concomitant]
     Active Substance: CYCLOBENZAPRINE
     Indication: Product used for unknown indication
  41. DESOXIMETASONE [Concomitant]
     Active Substance: DESOXIMETASONE
     Indication: Rheumatoid arthritis
     Route: 058
  42. DESOXIMETASONE [Concomitant]
     Active Substance: DESOXIMETASONE
     Route: 048
  43. DESOXIMETASONE [Concomitant]
     Active Substance: DESOXIMETASONE
  44. DESOXIMETASONE [Concomitant]
     Active Substance: DESOXIMETASONE
  45. DICLOFENAC [Concomitant]
     Active Substance: DICLOFENAC
     Indication: Product used for unknown indication
  46. DOMPERIDONE [Concomitant]
     Active Substance: DOMPERIDONE
     Indication: Product used for unknown indication
  47. ERELZI [Concomitant]
     Active Substance: ETANERCEPT-SZZS
     Indication: Rheumatoid arthritis
  48. ERGOCALCIFEROL [Concomitant]
     Active Substance: ERGOCALCIFEROL
     Indication: Product used for unknown indication
  49. FINACEA [Concomitant]
     Active Substance: AZELAIC ACID
     Indication: Product used for unknown indication
  50. FLUMETHASONE PIVALATE [Concomitant]
     Active Substance: FLUMETHASONE PIVALATE
     Indication: Product used for unknown indication
     Route: 048
  51. FLUTICASONE PROPIONATE [Concomitant]
     Active Substance: FLUTICASONE PROPIONATE
     Indication: Product used for unknown indication
  52. FOLIC ACID [Concomitant]
     Active Substance: FOLIC ACID
     Indication: Rheumatoid arthritis
  53. FOLIC ACID [Concomitant]
     Active Substance: FOLIC ACID
     Route: 048
  54. FOLIC ACID [Concomitant]
     Active Substance: FOLIC ACID
  55. FOLIC ACID [Concomitant]
     Active Substance: FOLIC ACID
  56. FOLIC ACID [Concomitant]
     Active Substance: FOLIC ACID
  57. FOSAMAX [Concomitant]
     Active Substance: ALENDRONATE SODIUM
     Indication: Rheumatoid arthritis
  58. GOLD SODIUM THIOMALATE [Concomitant]
     Active Substance: GOLD SODIUM THIOMALATE
     Indication: Product used for unknown indication
  59. HYDROMORPHONE [Concomitant]
     Active Substance: HYDROMORPHONE
     Indication: Rheumatoid arthritis
  60. HYDROXYCHLOROQUINE [Concomitant]
     Active Substance: HYDROXYCHLOROQUINE
     Indication: Rheumatoid arthritis
  61. HYDROXYCHLOROQUINE [Concomitant]
     Active Substance: HYDROXYCHLOROQUINE
  62. HYDROXYCHLOROQUINE [Concomitant]
     Active Substance: HYDROXYCHLOROQUINE
  63. INFLIXIMAB [Concomitant]
     Active Substance: INFLIXIMAB
     Indication: Rheumatoid arthritis
     Route: 040
  64. INFLIXIMAB [Concomitant]
     Active Substance: INFLIXIMAB
  65. LAMOTRIGINE [Concomitant]
     Active Substance: LAMOTRIGINE
     Indication: Product used for unknown indication
     Route: 048
  66. LAMOTRIGINE [Concomitant]
     Active Substance: LAMOTRIGINE
  67. LAMOTRIGINE [Concomitant]
     Active Substance: LAMOTRIGINE
  68. LAMOTRIGINE [Concomitant]
     Active Substance: LAMOTRIGINE
     Route: 048
  69. LAMOTRIGINE [Concomitant]
     Active Substance: LAMOTRIGINE
     Route: 048
  70. LAMOTRIGINE [Concomitant]
     Active Substance: LAMOTRIGINE
  71. LEFLUNOMIDE [Concomitant]
     Active Substance: LEFLUNOMIDE
     Indication: Rheumatoid arthritis
  72. LEFLUNOMIDE [Concomitant]
     Active Substance: LEFLUNOMIDE
  73. LEVOMILNACIPRAN [Concomitant]
     Active Substance: LEVOMILNACIPRAN
     Indication: Product used for unknown indication
  74. MAGNESIUM [Concomitant]
     Active Substance: MAGNESIUM
     Indication: Product used for unknown indication
  75. METHOTREXATE [Concomitant]
     Active Substance: METHOTREXATE
     Indication: Rheumatoid arthritis
     Route: 048
  76. METHOTREXATE [Concomitant]
     Active Substance: METHOTREXATE
  77. METHOTREXATE [Concomitant]
     Active Substance: METHOTREXATE
     Route: 048
  78. METHOTREXATE [Concomitant]
     Active Substance: METHOTREXATE
  79. METHYLPREDNISOLONE [Concomitant]
     Active Substance: METHYLPREDNISOLONE
     Indication: Product used for unknown indication
  80. MINOCYCLINE [Concomitant]
     Active Substance: MINOCYCLINE HYDROCHLORIDE
     Indication: Product used for unknown indication
  81. MYRBETRIQ [Concomitant]
     Active Substance: MIRABEGRON
     Indication: Product used for unknown indication
     Route: 048
  82. MYRBETRIQ [Concomitant]
     Active Substance: MIRABEGRON
  83. NAPROXEN [Concomitant]
     Active Substance: NAPROXEN
     Indication: Rheumatoid arthritis
  84. NUCALA [Concomitant]
     Active Substance: MEPOLIZUMAB
     Indication: Product used for unknown indication
  85. OTEZLA [Concomitant]
     Active Substance: APREMILAST
     Indication: Product used for unknown indication
  86. OXYCODONE [Concomitant]
     Active Substance: OXYCODONE
     Indication: Product used for unknown indication
  87. PANTOPRAZOLE [Concomitant]
     Active Substance: PANTOPRAZOLE
     Indication: Product used for unknown indication
  88. PHENYLEPHRINE HYDROCHLORIDE [Concomitant]
     Active Substance: PHENYLEPHRINE HYDROCHLORIDE
     Indication: Rheumatoid arthritis
  89. PHOSPHORUS [Concomitant]
     Active Substance: PHOSPHORUS
     Indication: Rheumatoid arthritis
  90. PHTHALYLSULFATHIAZOLE [Concomitant]
     Active Substance: PHTHALYLSULFATHIAZOLE
     Indication: Rheumatoid arthritis
  91. PHTHALYLSULFATHIAZOLE [Concomitant]
     Active Substance: PHTHALYLSULFATHIAZOLE
  92. PHTHALYLSULFATHIAZOLE [Concomitant]
     Active Substance: PHTHALYLSULFATHIAZOLE
  93. PREDNISONE [Concomitant]
     Active Substance: PREDNISONE
     Indication: Rheumatoid arthritis
  94. PREDNISONE [Concomitant]
     Active Substance: PREDNISONE
  95. PREDNISONE [Concomitant]
     Active Substance: PREDNISONE
  96. PREDNISONE [Concomitant]
     Active Substance: PREDNISONE
     Route: 048
  97. PREDNISONE [Concomitant]
     Active Substance: PREDNISONE
     Route: 048
  98. PREDNISONE [Concomitant]
     Active Substance: PREDNISONE
     Route: 048
  99. PSEUDOEPHEDRINE HYDROCHLORIDE [Concomitant]
     Active Substance: PSEUDOEPHEDRINE HYDROCHLORIDE
     Indication: Rheumatoid arthritis
  100. PSEUDOEPHEDRINE HYDROCHLORIDE [Concomitant]
     Active Substance: PSEUDOEPHEDRINE HYDROCHLORIDE
  101. PSEUDOEPHEDRINE HYDROCHLORIDE [Concomitant]
     Active Substance: PSEUDOEPHEDRINE HYDROCHLORIDE
  102. RAMIPRIL [Concomitant]
     Active Substance: RAMIPRIL
     Indication: Rheumatoid arthritis
  103. RAMIPRIL [Concomitant]
     Active Substance: RAMIPRIL
     Route: 040
  104. RAMIPRIL [Concomitant]
     Active Substance: RAMIPRIL
     Route: 016
  105. RANITIDINE [Concomitant]
     Active Substance: RANITIDINE
     Indication: Rheumatoid arthritis
  106. RANITIDINE [Concomitant]
     Active Substance: RANITIDINE
  107. RANITIDINE [Concomitant]
     Active Substance: RANITIDINE
     Route: 040
  108. RANITIDINE [Concomitant]
     Active Substance: RANITIDINE
     Route: 058
  109. SIMPONI [Concomitant]
     Active Substance: GOLIMUMAB
     Indication: Rheumatoid arthritis
  110. SIMPONI [Concomitant]
     Active Substance: GOLIMUMAB
     Route: 058
  111. SIRUKUMAB [Concomitant]
     Active Substance: SIRUKUMAB
     Indication: Product used for unknown indication
  112. SODIUM AUROTIOSULFATE [Concomitant]
     Active Substance: SODIUM AUROTIOSULFATE
     Indication: Product used for unknown indication
     Route: 030
  113. SULFASALAZINE [Concomitant]
     Active Substance: SULFASALAZINE
     Indication: Rheumatoid arthritis
  114. SULFASALAZINE [Concomitant]
     Active Substance: SULFASALAZINE
  115. SULFASALAZINE [Concomitant]
     Active Substance: SULFASALAZINE
     Route: 048
  116. SULFASALAZINE [Concomitant]
     Active Substance: SULFASALAZINE
  117. SULFASALAZINE [Concomitant]
     Active Substance: SULFASALAZINE
  118. SULFASALAZINE [Concomitant]
     Active Substance: SULFASALAZINE
  119. SULFASALAZINE [Concomitant]
     Active Substance: SULFASALAZINE
  120. SULFASALAZINE [Concomitant]
     Active Substance: SULFASALAZINE
     Route: 048
  121. SULFASALAZINE [Concomitant]
     Active Substance: SULFASALAZINE
  122. SULFASALAZINE [Concomitant]
     Active Substance: SULFASALAZINE
     Route: 048
  123. SULFASALAZINE [Concomitant]
     Active Substance: SULFASALAZINE
     Route: 048
  124. SULFASALAZINE [Concomitant]
     Active Substance: SULFASALAZINE
     Route: 048
  125. TOPIRAMATE [Concomitant]
     Active Substance: TOPIRAMATE
     Indication: Migraine
  126. TOPIRAMATE [Concomitant]
     Active Substance: TOPIRAMATE
  127. TRAMADOL HYDROCHLORIDE [Concomitant]
     Active Substance: TRAMADOL HYDROCHLORIDE
     Indication: Product used for unknown indication
  128. TRAZODONE [Concomitant]
     Active Substance: TRAZODONE HYDROCHLORIDE
     Indication: Product used for unknown indication
  129. TRETINOIN [Concomitant]
     Active Substance: TRETINOIN
  130. XELJANZ [Concomitant]
     Active Substance: TOFACITINIB CITRATE
     Indication: Rheumatoid arthritis

REACTIONS (1)
  - Death [Fatal]
